FAERS Safety Report 9467053 (Version 1)
Quarter: 2013Q3

REPORT INFORMATION
  Report Type: Spontaneous
  Country: JP (occurrence: JP)
  Receive Date: 20130820
  Receipt Date: 20130820
  Transmission Date: 20140515
  Serious: Yes (Hospitalization)
  Sender: FDA-Public Use
  Company Number: JP-GLAXOSMITHKLINE-B0916089A

PATIENT
  Age: 6 Decade
  Sex: Male

DRUGS (2)
  1. PAXIL [Suspect]
     Indication: PRODUCT USED FOR UNKNOWN INDICATION
     Route: 048
  2. UNKNOWN DRUG [Concomitant]
     Route: 065

REACTIONS (2)
  - Pneumonia aspiration [Unknown]
  - Extrapyramidal disorder [Unknown]
